FAERS Safety Report 7543090-X (Version None)
Quarter: 2011Q2

REPORT INFORMATION
  Report Type: 
  Country: None (occurrence: None)
  Receive Date: 20110613
  Receipt Date: 20110606
  Transmission Date: 20111010
  Serious: Yes (Hospitalization)
  Sender: FDA-Public Use
  Company Number: PHHY2011US49356

PATIENT
  Age: 15 Year
  Sex: Female
  Weight: 52.154 kg

DRUGS (1)
  1. TOBI [Suspect]
     Dosage: 300 MG, BID, 28 DAY SON 28 DAYS OFF
     Dates: start: 20110103

REACTIONS (1)
  - UPPER RESPIRATORY TRACT INFECTION [None]
